FAERS Safety Report 9714386 (Version 1)
Quarter: 2013Q4

REPORT INFORMATION
  Report Type: Spontaneous
  Country: IT (occurrence: IT)
  Receive Date: 20131126
  Receipt Date: 20131126
  Transmission Date: 20140711
  Serious: Yes (Other)
  Sender: FDA-Public Use
  Company Number: IT-TEVA-444642ISR

PATIENT
  Age: 55 Year
  Sex: Male
  Weight: 71 kg

DRUGS (2)
  1. RIBAVIRINA [Suspect]
     Indication: HEPATITIS C
     Dosage: 1000 MILLIGRAM DAILY;
     Route: 048
     Dates: start: 20130531, end: 20130826
  2. INCIVO 375 MG COMPRIMIDOS RECUBIERTOS CON PELICULA, 168 COMPRIMIDO [Suspect]
     Indication: HEPATITIS C
     Dosage: 2250 MILLIGRAM DAILY;
     Route: 048
     Dates: start: 20130719, end: 20130826

REACTIONS (3)
  - Paraesthesia [Unknown]
  - Rash pruritic [Unknown]
  - Rash [Unknown]
